FAERS Safety Report 4417113-0 (Version None)
Quarter: 2004Q2

REPORT INFORMATION
  Report Type: 
  Country: None (occurrence: None)
  Receive Date: 20040628
  Receipt Date: 20040402
  Transmission Date: 20050107
  Serious: No
  Sender: FDA-Public Use
  Company Number: USA-2004-0014292

PATIENT
  Age: 41 Year
  Sex: Male

DRUGS (1)
  1. SPECTRACEF [Suspect]
     Indication: PHARYNGOLARYNGEAL PAIN
     Dosage: 200 MG

REACTIONS (1)
  - LETHARGY [None]
